FAERS Safety Report 4299880-2 (Version None)
Quarter: 2004Q1

REPORT INFORMATION
  Report Type: 
  Country: None (occurrence: None)
  Receive Date: 20040219
  Receipt Date: 20040219
  Transmission Date: 20041129
  Serious: No
  Sender: FDA-Public Use
  Company Number: None

PATIENT
  Age: 54 Year

DRUGS (4)
  1. CLIMARA [Suspect]
     Indication: MENOPAUSE
     Dosage: 1 PATCH Q WEEK
     Dates: start: 20030101
  2. CELEXA [Concomitant]
  3. PROMETRIUM [Concomitant]
  4. LIPITOR [Concomitant]

REACTIONS (5)
  - APPLICATION SITE REACTION [None]
  - HOT FLUSH [None]
  - PHARMACEUTICAL PRODUCT COMPLAINT [None]
  - RASH [None]
  - THERAPEUTIC RESPONSE DECREASED [None]
